FAERS Safety Report 6478054-0 (Version None)
Quarter: 2009Q4

REPORT INFORMATION
  Report Type: 
  Country: None (occurrence: None)
  Receive Date: 20091203
  Receipt Date: 20091203
  Transmission Date: 20100525
  Serious: Yes (Hospitalization, Other)
  Sender: FDA-Public Use
  Company Number: None

PATIENT
  Age: 17 Year
  Sex: Female
  Weight: 56.6996 kg

DRUGS (2)
  1. CHLOROQUINE PHOSPHATE [Suspect]
     Indication: MALARIA
     Dosage: 500 MG ONCE A WEEK
     Dates: start: 20090703, end: 20090710
  2. CHLOROQUINE PHOSPHATE [Suspect]
     Indication: PROPHYLAXIS
     Dosage: 500 MG ONCE A WEEK
     Dates: start: 20090703, end: 20090710

REACTIONS (8)
  - ABNORMAL DREAMS [None]
  - CRYING [None]
  - DEPRESSION [None]
  - FEELING ABNORMAL [None]
  - INSOMNIA [None]
  - NIGHTMARE [None]
  - PANIC REACTION [None]
  - THINKING ABNORMAL [None]
